FAERS Safety Report 4635352-0 (Version None)
Quarter: 2005Q2

REPORT INFORMATION
  Report Type: 
  Country: None (occurrence: None)
  Receive Date: 20050411
  Receipt Date: 20020107
  Transmission Date: 20051028
  Serious: Yes (Hospitalization, Disabling)
  Sender: FDA-Public Use
  Company Number: 3242

PATIENT
  Age: 5 Year
  Sex: Female

DRUGS (5)
  1. VINCRISTINE [Suspect]
     Indication: ACUTE LYMPHOCYTIC LEUKAEMIA
  2. NIFEDIPINE [Concomitant]
  3. ITRACONAZOLE [Concomitant]
  4. DEXAMETHASONE [Concomitant]
  5. L-ASPARGINASE [Concomitant]

REACTIONS (15)
  - AREFLEXIA [None]
  - ASTHENIA [None]
  - BRONCHOPULMONARY ASPERGILLOSIS [None]
  - CARDIAC FAILURE [None]
  - CONVULSION [None]
  - CRANIAL NERVE PALSIES MULTIPLE [None]
  - DIFFICULTY IN WALKING [None]
  - DRUG INTERACTION [None]
  - EYELID PTOSIS [None]
  - HYPERTENSION [None]
  - INAPPROPRIATE ANTIDIURETIC HORMONE SECRETION [None]
  - NEUROPATHY PERIPHERAL [None]
  - NEUROTOXICITY [None]
  - OPHTHALMOPLEGIA [None]
  - SYSTEMIC CANDIDA [None]
